FAERS Safety Report 6972216-1 (Version None)
Quarter: 2010Q3

REPORT INFORMATION
  Report Type: 
  Country: None (occurrence: None)
  Receive Date: 20100909
  Receipt Date: 20100903
  Transmission Date: 20110219
  Serious: No
  Sender: FDA-Public Use
  Company Number: 2009BI041052

PATIENT
  Age: 42 Year
  Sex: Male

DRUGS (1)
  1. TYSABRI [Suspect]
     Indication: MULTIPLE SCLEROSIS
     Route: 042
     Dates: start: 20070919

REACTIONS (5)
  - CHILLS [None]
  - GAIT DISTURBANCE [None]
  - INFLUENZA [None]
  - PYREXIA [None]
  - VIRAL INFECTION [None]
